FAERS Safety Report 6448757-2 (Version None)
Quarter: 2009Q4

REPORT INFORMATION
  Report Type: 
  Country: None (occurrence: None)
  Receive Date: 20091120
  Receipt Date: 20091020
  Transmission Date: 20100525
  Serious: No
  Sender: FDA-Public Use
  Company Number: US-KINGPHARMUSA00001-K200901317

PATIENT
  Age: 78 Year
  Sex: Female

DRUGS (6)
  1. FLECTOR [Suspect]
     Indication: MUSCULOSKELETAL PAIN
     Dosage: 1 PATCH, FOR 12 HOURS QD
     Route: 061
     Dates: start: 20090901, end: 20091020
  2. FLECTOR [Suspect]
     Indication: MYALGIA
  3. VICODIN [Concomitant]
     Indication: MUSCULOSKELETAL PAIN
     Dosage: UNK, PRN
     Route: 048
  4. CARDIAZEM [Concomitant]
     Indication: HYPERTENSION
     Dosage: UNK, QD
     Route: 048
  5. GABAPENTIN [Concomitant]
     Indication: ANXIETY
     Dosage: UNK
     Route: 048
  6. KLONOPIN [Concomitant]
     Indication: ANXIETY
     Dosage: UNK, QD
     Route: 048

REACTIONS (1)
  - DRUG INEFFECTIVE [None]
